FAERS Safety Report 24037231 (Version 2)
Quarter: 2024Q3

REPORT INFORMATION
  Report Type: Report from Study
  Country: CA (occurrence: CA)
  Receive Date: 20240702
  Receipt Date: 20240722
  Transmission Date: 20241017
  Serious: Yes (Hospitalization, Other)
  Sender: Alvotech
  Company Number: CA-JAMP PHARMA CORPORATION-2023-JAM-CA-02381

PATIENT
  Age: 35 Year
  Sex: Female

DRUGS (2)
  1. SIMLANDI [Suspect]
     Active Substance: ADALIMUMAB-RYVK
     Indication: Crohn^s disease
     Dosage: REINDUCTION + 40 MG WEEKLY
     Route: 058
     Dates: start: 202406
  2. SIMLANDI [Suspect]
     Active Substance: ADALIMUMAB-RYVK
     Indication: Crohn^s disease
     Dosage: 40MG, UNK
     Route: 058
     Dates: start: 20231001

REACTIONS (4)
  - Crohn^s disease [Unknown]
  - Pain [Not Recovered/Not Resolved]
  - Product dose omission issue [Unknown]
  - Off label use [Unknown]

NARRATIVE: CASE EVENT DATE: 20231126
